FAERS Safety Report 7460643-8 (Version None)
Quarter: 2011Q2

REPORT INFORMATION
  Report Type: 
  Country: None (occurrence: None)
  Receive Date: 20110505
  Receipt Date: 20110504
  Transmission Date: 20111010
  Serious: Yes (Hospitalization)
  Sender: FDA-Public Use
  Company Number: US-B.I. PHARMACEUTICALS,INC./RIDGEFIELD-2011-BP-08414BP

PATIENT
  Age: 80 Year
  Sex: Male

DRUGS (12)
  1. LEXAPRO [Concomitant]
     Dosage: 20 MG
     Route: 048
     Dates: start: 20110116
  2. PRADAXA [Suspect]
     Indication: ATRIAL FIBRILLATION
     Dosage: 300 MG
     Route: 048
     Dates: start: 20110112
  3. LOPRESSOR [Concomitant]
     Dosage: 50 MG
     Route: 048
     Dates: start: 20110111
  4. JANUVIA [Concomitant]
     Dosage: 100 MG
     Route: 048
     Dates: start: 20110112
  5. CALAN [Concomitant]
     Dosage: 180 MG
     Route: 048
     Dates: start: 20110112
  6. LANOXIN [Concomitant]
     Dosage: 0.125 MG
     Route: 048
     Dates: start: 20110115
  7. ACTOS [Concomitant]
     Dosage: 30 MG
     Route: 048
     Dates: start: 20110119
  8. ZESTRIL [Concomitant]
     Dosage: 20 MG
     Route: 048
     Dates: start: 20110118
  9. ZEGERID [Concomitant]
     Dosage: 40 MG
     Route: 048
     Dates: start: 20110115
  10. MEVACOR [Concomitant]
     Dosage: 40 MG
     Route: 048
     Dates: start: 20110112
  11. LASIX [Concomitant]
     Dosage: 40 MG
     Route: 048
     Dates: start: 20110119
  12. FERROUS SULFATE TAB [Concomitant]
     Dosage: 300 MG
     Route: 048
     Dates: start: 20110115

REACTIONS (1)
  - EPISTAXIS [None]
